FAERS Safety Report 6966781-8 (Version None)
Quarter: 2010Q3

REPORT INFORMATION
  Report Type: 
  Country: None (occurrence: None)
  Receive Date: 20100906
  Receipt Date: 20100902
  Transmission Date: 20110219
  Serious: Yes (Death, Hospitalization)
  Sender: FDA-Public Use
  Company Number: IN-BRISTOL-MYERS SQUIBB COMPANY-14985279

PATIENT
  Age: 70 Year
  Sex: Male

DRUGS (13)
  1. CARBOPLATIN [Suspect]
     Indication: NON-SMALL CELL LUNG CANCER
     Route: 042
     Dates: start: 20090822, end: 20100106
  2. PACLITAXEL [Suspect]
     Indication: NON-SMALL CELL LUNG CANCER
     Route: 042
     Dates: start: 20090822, end: 20100106
  3. CP-751,871 [Suspect]
     Indication: NON-SMALL CELL LUNG CANCER
     Route: 042
     Dates: start: 20090822, end: 20100106
  4. ECOSPRIN [Suspect]
     Route: 048
     Dates: start: 20100130, end: 20100206
  5. CREMAFFIN [Suspect]
     Dates: start: 20100206, end: 20100206
  6. IMDUR [Concomitant]
     Dates: start: 20091229
  7. FLAVEDON MR [Concomitant]
     Dates: start: 20091224
  8. NUCARNIT [Concomitant]
     Dates: start: 20091229
  9. DYTOR [Concomitant]
     Dates: start: 20091229
  10. MINERAL TAB [Concomitant]
     Dates: start: 20100101
  11. FOLVITE [Concomitant]
     Dates: start: 20100101
  12. SODIUM FLUORIDE [Concomitant]
     Dates: start: 20100101
  13. CARVEDILOL [Concomitant]
     Dates: start: 20091224

REACTIONS (10)
  - ASTHENIA [None]
  - CARDIO-RESPIRATORY ARREST [None]
  - CEREBROVASCULAR ACCIDENT [None]
  - CONVULSION [None]
  - DECREASED APPETITE [None]
  - DIARRHOEA [None]
  - GASTROINTESTINAL HAEMORRHAGE [None]
  - GLOSSITIS [None]
  - HEMIPARESIS [None]
  - SEPTIC SHOCK [None]
